FAERS Safety Report 4463747-7 (Version None)
Quarter: 2004Q3

REPORT INFORMATION
  Report Type: 
  Country: None (occurrence: None)
  Receive Date: 20040929
  Receipt Date: 20040916
  Transmission Date: 20050211
  Serious: Yes (Death)
  Sender: FDA-Public Use
  Company Number: 2004IM000867

PATIENT
  Age: 53 Year
  Sex: Female

DRUGS (1)
  1. ADVAFERON (A643_INTERFERON ALFACON-1) [Suspect]

REACTIONS (2)
  - PANCYTOPENIA [None]
  - SEPSIS [None]
